FAERS Safety Report 11552397 (Version 1)
Quarter: 2015Q3

REPORT INFORMATION
  Report Type: Spontaneous
  Country: US (occurrence: None)
  Receive Date: 20150924
  Receipt Date: 20150924
  Transmission Date: 20151125
  Serious: Yes (Other)
  Sender: FDA-Public Use
  Company Number: None

PATIENT
  Age: 69 Year
  Sex: Male
  Weight: 101.15 kg

DRUGS (5)
  1. JANUVIA [Suspect]
     Active Substance: SITAGLIPTIN PHOSPHATE
     Indication: TYPE 2 DIABETES MELLITUS
     Route: 048
     Dates: start: 20150521, end: 20150909
  2. ATENOLOL 12.5 MG [Concomitant]
  3. METFORMIN [Concomitant]
     Active Substance: METFORMIN HYDROCHLORIDE
  4. ASPIRIN 81 MG [Concomitant]
     Active Substance: ASPIRIN
  5. ADVIL [Concomitant]
     Active Substance: IBUPROFEN

REACTIONS (7)
  - Musculoskeletal stiffness [None]
  - Pain in extremity [None]
  - Pelvic pain [None]
  - Gait disturbance [None]
  - Muscle tightness [None]
  - Joint stiffness [None]
  - Arthralgia [None]

NARRATIVE: CASE EVENT DATE: 20150520
